FAERS Safety Report 24968304 (Version 1)
Quarter: 2025Q1

REPORT INFORMATION
  Report Type: Spontaneous
  Country: RU (occurrence: RU)
  Receive Date: 20250214
  Receipt Date: 20250214
  Transmission Date: 20250409
  Serious: Yes (Other)
  Sender: CHEPLAPHARM
  Company Number: RU-ROCHE-3318925

PATIENT
  Age: 54 Year
  Sex: Female

DRUGS (13)
  1. CAPECITABINE [Suspect]
     Active Substance: CAPECITABINE
     Indication: Breast cancer
     Dates: start: 20181101
  2. TRASTUZUMAB [Suspect]
     Active Substance: TRASTUZUMAB
     Indication: Breast cancer
  3. TRASTUZUMAB [Suspect]
     Active Substance: TRASTUZUMAB
     Indication: Breast cancer
  4. KADCYLA [Suspect]
     Active Substance: ADO-TRASTUZUMAB EMTANSINE
     Indication: Breast cancer
     Route: 042
     Dates: start: 20191127
  5. KADCYLA [Suspect]
     Active Substance: ADO-TRASTUZUMAB EMTANSINE
     Indication: Breast cancer
     Dosage: DAILY DOSE: 234 MILLIGRAM
     Route: 042
     Dates: start: 20240419
  6. DOCETAXEL [Suspect]
     Active Substance: DOCETAXEL
     Indication: Breast cancer
  7. PREDNISOLONE [Concomitant]
     Active Substance: PREDNISOLONE
  8. TRIMETAZIDINE [Concomitant]
     Active Substance: TRIMETAZIDINE
  9. SAMELIX [Concomitant]
     Dosage: DAILY DOSE: 400 MILLIGRAM
  10. ADEMETIONINE [Concomitant]
     Active Substance: ADEMETIONINE
  11. OMEPRAZOLE [Concomitant]
     Active Substance: OMEPRAZOLE
  12. XARELTO [Concomitant]
     Active Substance: RIVAROXABAN
  13. NEBIVOLOL [Concomitant]
     Active Substance: NEBIVOLOL

REACTIONS (23)
  - Pneumonia [Unknown]
  - Arteriovenous malformation [Unknown]
  - Leukopenia [Unknown]
  - Hyperbilirubinaemia [Unknown]
  - Arnold-Chiari malformation [Unknown]
  - Pulmonary fibrosis [Unknown]
  - Congenital hypothyroidism [Unknown]
  - Disease progression [Unknown]
  - Interstitial lung abnormality [Unknown]
  - Coronavirus infection [Unknown]
  - Hepatic cyst [Unknown]
  - Ovarian cyst [Unknown]
  - Splenic calcification [Unknown]
  - Splenomegaly [Unknown]
  - Pain [Unknown]
  - Respiratory tract infection [Unknown]
  - Blood thyroid stimulating hormone increased [Unknown]
  - Oropharyngeal pain [Unknown]
  - Cough [Unknown]
  - Body temperature increased [Unknown]
  - Respiratory tract infection viral [Unknown]
  - Epistaxis [Unknown]
  - Lymphadenopathy mediastinal [Unknown]

NARRATIVE: CASE EVENT DATE: 20210601
